FAERS Safety Report 20578376 (Version 1)
Quarter: 2022Q1

REPORT INFORMATION
  Report Type: Spontaneous
  Country: US (occurrence: None)
  Receive Date: 20220310
  Receipt Date: 20220310
  Transmission Date: 20220423
  Serious: No
  Sender: FDA-Public Use
  Company Number: None

PATIENT
  Age: 41 Year
  Sex: Male

DRUGS (1)
  1. AMOXICILLIN\CLAVULANATE POTASSIUM [Suspect]
     Active Substance: AMOXICILLIN\CLAVULANATE POTASSIUM
     Dates: start: 20210929, end: 20211004

REACTIONS (4)
  - Insomnia [None]
  - Suicidal ideation [None]
  - Psychomotor hyperactivity [None]
  - Delirium [None]

NARRATIVE: CASE EVENT DATE: 20211004
